FAERS Safety Report 7927474-3 (Version None)
Quarter: 2011Q4

REPORT INFORMATION
  Report Type: 
  Country: None (occurrence: None)
  Receive Date: 20111118
  Receipt Date: 20111109
  Transmission Date: 20120403
  Serious: Yes (Other)
  Sender: FDA-Public Use
  Company Number: US-BAYER-2011-109931

PATIENT
  Age: 26 Year
  Weight: 107.94 kg

DRUGS (3)
  1. YASMIN [Suspect]
     Indication: CONTRACEPTION
     Dosage: UNK
     Dates: start: 20050101
  2. SINGULAIR [Concomitant]
  3. YAZ [Suspect]
     Indication: CONTRACEPTION
     Dosage: UNK
     Dates: start: 20071212, end: 20090601

REACTIONS (8)
  - CHOLECYSTITIS CHRONIC [None]
  - ABDOMINAL PAIN [None]
  - PAINFUL RESPIRATION [None]
  - SCAR [None]
  - PLEURISY [None]
  - CHEST PAIN [None]
  - GALLBLADDER DISORDER [None]
  - DYSPNOEA [None]
